FAERS Safety Report 7679049-1 (Version None)
Quarter: 2011Q3

REPORT INFORMATION
  Report Type: 
  Country: None (occurrence: None)
  Receive Date: 20110812
  Receipt Date: 20110614
  Transmission Date: 20111222
  Serious: Yes (Death, Hospitalization)
  Sender: FDA-Public Use
  Company Number: US-AMGEN-USACT2011028764

PATIENT
  Age: 93 Year
  Sex: Male
  Weight: 57.2 kg

DRUGS (21)
  1. RESTORIL [Concomitant]
     Dosage: 7.5 MG, PRN
     Route: 048
     Dates: start: 20110329
  2. NITROSTAT [Concomitant]
     Dosage: 0.4 MG, PRN
     Route: 060
     Dates: start: 20110407
  3. ZYLOPRIM [Concomitant]
     Dosage: 100 MG, QD
     Route: 048
     Dates: start: 20110224
  4. ALBUTEROL SULFATE AUTOHALER [Concomitant]
     Dosage: UNK UNK, PRN
     Dates: start: 20110401
  5. ATROVENT [Concomitant]
     Dosage: 2.5 ML, QID
     Dates: start: 20110401
  6. FLOMAX [Concomitant]
     Dosage: 0.4 MG, QD
     Route: 048
     Dates: start: 20110329
  7. PLAVIX [Concomitant]
     Dosage: 75 MG, QD
     Route: 048
     Dates: start: 20110208
  8. IMDUR [Concomitant]
     Dosage: 30 MG, BID
     Route: 048
     Dates: start: 20110103
  9. PLACEBO [Suspect]
     Indication: CARDIAC FAILURE
     Dates: start: 20091006, end: 20110517
  10. LASIX [Concomitant]
     Dosage: 20 MG, BID
     Dates: start: 20110502
  11. DIOVAN [Concomitant]
     Dosage: 0.5 MG, QD
     Route: 048
     Dates: start: 20110321
  12. COREG [Concomitant]
     Dosage: 6.25 MG, BID
     Route: 048
     Dates: start: 20110321
  13. PEPCID [Concomitant]
     Dosage: 20 MG, QD
     Dates: start: 20110510
  14. TYLENOL-500 [Concomitant]
     Dosage: 325 MG, PRN
     Dates: start: 20110329
  15. MAALOX [Concomitant]
     Dosage: 30 ML, PRN
     Route: 048
     Dates: start: 20110329
  16. ZOCOR [Concomitant]
     Dosage: 40 MG, QD
     Route: 048
     Dates: start: 20100830
  17. ASPIRIN [Concomitant]
     Dosage: 325 MG, QD
     Dates: start: 20090521
  18. BLINDED DARBEPOETIN ALFA [Suspect]
     Indication: CARDIAC FAILURE
     Dates: start: 20091006, end: 20110517
  19. METOLAZONE [Concomitant]
     Dosage: UNK UNK, PRN
     Dates: start: 20110412
  20. COLACE [Concomitant]
     Dosage: 100 MG, PRN
     Dates: start: 20110329
  21. SYNTHROID [Concomitant]
     Dosage: 75 A?G, QD
     Route: 048
     Dates: start: 20110224

REACTIONS (2)
  - SMALL INTESTINAL OBSTRUCTION [None]
  - RENAL FAILURE [None]
